FAERS Safety Report 8776418 (Version 1)
Quarter: 2012Q4

REPORT INFORMATION
  Report Type: Report from Study
  Country: CA (occurrence: CA)
  Receive Date: 20120910
  Receipt Date: 20120910
  Transmission Date: 20130627
  Serious: Yes (Other)
  Sender: FDA-Public Use
  Company Number: CA-JNJFOC-20120815089

PATIENT
  Age: 19 Year
  Sex: Female
  Weight: 75.3 kg

DRUGS (8)
  1. REMICADE [Suspect]
     Indication: CROHN^S DISEASE
     Route: 042
     Dates: start: 20120830
  2. REMICADE [Suspect]
     Indication: CROHN^S DISEASE
     Route: 042
     Dates: start: 20120306
  3. TYLENOL [Suspect]
     Route: 048
  4. TYLENOL [Suspect]
     Indication: INFUSION RELATED REACTION
     Route: 048
     Dates: start: 20120830
  5. BENADRYL [Suspect]
     Indication: INFUSION RELATED REACTION
     Route: 042
     Dates: start: 20120830
  6. MULTIVITAMINS [Concomitant]
     Route: 065
  7. BENADRYL [Concomitant]
     Indication: PREMEDICATION
     Route: 042
     Dates: start: 20120830
  8. SOLUCORTEF [Concomitant]
     Indication: PREMEDICATION
     Route: 065
     Dates: start: 20120830

REACTIONS (7)
  - Dyspnoea [Recovered/Resolved]
  - Infusion related reaction [Recovered/Resolved]
  - Anxiety [Recovered/Resolved]
  - Nausea [Recovered/Resolved]
  - Flushing [Recovered/Resolved]
  - Vomiting [Recovered/Resolved]
  - Pallor [Recovered/Resolved]
